FAERS Safety Report 8152444-2 (Version None)
Quarter: 2012Q1

REPORT INFORMATION
  Report Type: 
  Country: None (occurrence: None)
  Receive Date: 20120215
  Receipt Date: 20120215
  Transmission Date: 20120608
  Serious: Yes (Hospitalization)
  Sender: FDA-Public Use
  Company Number: None

PATIENT
  Sex: Male
  Weight: 69.4 kg

DRUGS (11)
  1. GEMCITABINE [Suspect]
     Indication: PANCREATIC CARCINOMA
     Dosage: 1000MG/M2 D1 AND 8 OF 21 IV
     Route: 042
     Dates: start: 20120123
  2. GEMCITABINE [Suspect]
     Indication: PANCREATIC CARCINOMA
     Dosage: 1000MG/M2 D1 AND 8 OF 21 IV
     Route: 042
     Dates: start: 20120130
  3. NORCO [Concomitant]
  4. DOCUSATE [Concomitant]
  5. ZOFRAN [Concomitant]
  6. CREON [Concomitant]
  7. SENNA [Concomitant]
  8. ERLOTINIB 150 MG QD PO [Suspect]
     Indication: PANCREATIC CARCINOMA
     Dosage: 150 MG QD PO
     Route: 048
     Dates: start: 20120123
  9. REGLAN [Concomitant]
  10. MORPHINE [Concomitant]
  11. PROTONIX [Concomitant]

REACTIONS (3)
  - BILE DUCT OBSTRUCTION [None]
  - PNEUMONIA [None]
  - ENTEROBACTER INFECTION [None]
